FAERS Safety Report 18844672 (Version 1)
Quarter: 2021Q1

REPORT INFORMATION
  Report Type: Other
  Country: GB (occurrence: GB)
  Receive Date: 20210203
  Receipt Date: 20210203
  Transmission Date: 20210419
  Serious: No
  Sender: FDA-Public Use
  Company Number: GB-LUPIN PHARMACEUTICALS INC.-2021-00941

PATIENT
  Age: 86 Year
  Sex: Male
  Weight: 75 kg

DRUGS (8)
  1. ZOPICLONE [Concomitant]
     Active Substance: ZOPICLONE
     Indication: PRODUCT USED FOR UNKNOWN INDICATION
     Dosage: 1 DOSAGE FORM, QD (1 TABLET AT NIGHT)
     Route: 065
     Dates: start: 20201209
  2. VENTOLIN [Concomitant]
     Active Substance: ALBUTEROL SULFATE
     Indication: DYSPNOEA
     Dosage: UNK, (ONE OR TWO PUFFS UP TO FOUR TIMES A DAY WHEN REQUIRED FOR SHORTNESS OF BREATH)
     Route: 065
     Dates: start: 20210111
  3. SIMVASTATIN TABLETS [Suspect]
     Active Substance: SIMVASTATIN
     Indication: FALL
     Dosage: UNK
     Route: 048
  4. IBUPROFEN [IBUPROFEN SODIUM] [Concomitant]
     Active Substance: IBUPROFEN SODIUM
     Indication: PRODUCT USED FOR UNKNOWN INDICATION
     Dosage: UNK UNK, TID
     Route: 065
     Dates: start: 20210118
  5. PIROXICAM. [Concomitant]
     Active Substance: PIROXICAM
     Indication: PRODUCT USED FOR UNKNOWN INDICATION
     Dosage: UNK, (APPLY THREE TO FOUR TIMES DAILY AS NEEDED)
     Route: 065
     Dates: start: 20210111, end: 20210118
  6. LANSOPRAZOLE. [Concomitant]
     Active Substance: LANSOPRAZOLE
     Indication: PRODUCT USED FOR UNKNOWN INDICATION
     Dosage: UNK UNK, QD (TAKE ONE, GASTRO?RESISTANT CAPSULE)
     Route: 065
     Dates: start: 20210111, end: 20210111
  7. ASPIRIN [ACETYLSALICYLIC ACID] [Concomitant]
     Active Substance: ASPIRIN
     Indication: PRODUCT USED FOR UNKNOWN INDICATION
     Dosage: 1 DOSAGE FORM, QD (TAKE ONE DAILY)
     Route: 065
     Dates: start: 20210111, end: 20210111
  8. PARACETAMOL [Concomitant]
     Active Substance: ACETAMINOPHEN
     Indication: PRODUCT USED FOR UNKNOWN INDICATION
     Dosage: UNK, (TAKE ONE OR TWO TABLETS THREE TIMES A DAY WHEN REQUIRED OR DO NOT EXCEED THIS DAILY DOSE)
     Route: 065
     Dates: start: 20210111, end: 20210111

REACTIONS (1)
  - Adverse drug reaction [Recovering/Resolving]
